FAERS Safety Report 4811091-8 (Version None)
Quarter: 2005Q4

REPORT INFORMATION
  Report Type: 
  Country: None (occurrence: None)
  Receive Date: 20051025
  Receipt Date: 20050926
  Transmission Date: 20060501
  Serious: Yes (Hospitalization, Disabling)
  Sender: FDA-Public Use
  Company Number: 385293

PATIENT
  Age: 45 Year
  Sex: Male

DRUGS (3)
  1. LARIAM (MEFLOQUINE HYDROCHLORIDE) 250 MG [Suspect]
     Indication: PROPHYLAXIS
     Dosage: ORAL
     Route: 048
     Dates: start: 20020315, end: 20021215
  2. CIPRO [Concomitant]
  3. PRIMAQUINE [Concomitant]

REACTIONS (54)
  - ABNORMAL BEHAVIOUR [None]
  - ACUTE CORONARY SYNDROME [None]
  - AGGRESSION [None]
  - AGITATION [None]
  - AMNESIA [None]
  - ANXIETY [None]
  - ARTHRALGIA [None]
  - ASTHMA [None]
  - BALANCE DISORDER [None]
  - BLOOD POTASSIUM DECREASED [None]
  - BUNDLE BRANCH BLOCK RIGHT [None]
  - CHEST DISCOMFORT [None]
  - CHEST PAIN [None]
  - CHONDROPLASTY [None]
  - COORDINATION ABNORMAL [None]
  - CORONARY ARTERY DISEASE [None]
  - COUGH [None]
  - DEAFNESS [None]
  - DECREASED ACTIVITY [None]
  - DEPRESSION [None]
  - DISTURBANCE IN ATTENTION [None]
  - DRUG TOXICITY [None]
  - DYSPNOEA [None]
  - FATIGUE [None]
  - GENERALISED ANXIETY DISORDER [None]
  - HALLUCINATION, VISUAL [None]
  - HEADACHE [None]
  - HYPERHIDROSIS [None]
  - HYPERVIGILANCE [None]
  - INSOMNIA [None]
  - JOINT STIFFNESS [None]
  - KNEE MENISCECTOMY [None]
  - LOOSE BODY IN JOINT [None]
  - MOOD SWINGS [None]
  - MORBID THOUGHTS [None]
  - MYALGIA [None]
  - NOCTURIA [None]
  - OCCUPATIONAL EXPOSURE TO AIR CONTAMINANTS [None]
  - PALPITATIONS [None]
  - POOR QUALITY DRUG ADMINISTERED [None]
  - PULMONARY FUNCTION CHALLENGE TEST ABNORMAL [None]
  - PYREXIA [None]
  - RASH PAPULAR [None]
  - RHINITIS ALLERGIC [None]
  - SHOULDER PAIN [None]
  - SNORING [None]
  - SUICIDAL IDEATION [None]
  - TINNITUS [None]
  - TREMOR [None]
  - TROPONIN INCREASED [None]
  - VERTIGO [None]
  - VISUAL DISTURBANCE [None]
  - WEIGHT INCREASED [None]
  - WHEEZING [None]
